FAERS Safety Report 7678528-0 (Version None)
Quarter: 2011Q3

REPORT INFORMATION
  Report Type: 
  Country: None (occurrence: None)
  Receive Date: 20110811
  Receipt Date: 20110726
  Transmission Date: 20111222
  Serious: No
  Sender: FDA-Public Use
  Company Number: US-B.I. PHARMACEUTICALS,INC./RIDGEFIELD-2011-BP-19670BP

PATIENT
  Age: 67 Year
  Sex: Female

DRUGS (6)
  1. ALBUTEROL SULFATE AUTOHALER [Concomitant]
     Indication: CHRONIC OBSTRUCTIVE PULMONARY DISEASE
     Route: 055
  2. PREVACID [Concomitant]
     Indication: GASTROOESOPHAGEAL REFLUX DISEASE
  3. PULMICORT [Concomitant]
     Indication: CHRONIC OBSTRUCTIVE PULMONARY DISEASE
     Route: 055
  4. SPIRIVA [Suspect]
     Indication: CHRONIC OBSTRUCTIVE PULMONARY DISEASE
     Dosage: 18 MCG
     Route: 055
     Dates: start: 20050101
  5. OXYGEN [Concomitant]
  6. PREVACID [Concomitant]
     Indication: BARRETT'S OESOPHAGUS
     Dosage: 30 MG
     Route: 048

REACTIONS (3)
  - TONSILLAR HYPERTROPHY [None]
  - ORAL DISORDER [None]
  - THROAT TIGHTNESS [None]
